FAERS Safety Report 4584790-3 (Version None)
Quarter: 2005Q1

REPORT INFORMATION
  Report Type: 
  Country: None (occurrence: None)
  Receive Date: 20050217
  Receipt Date: 20050207
  Transmission Date: 20050727
  Serious: Yes (Hospitalization)
  Sender: FDA-Public Use
  Company Number: JP-JNJFOC-20041005585

PATIENT
  Sex: Female
  Weight: 43 kg

DRUGS (26)
  1. REMICADE [Suspect]
     Route: 042
  2. REMICADE [Suspect]
     Route: 042
  3. REMICADE [Suspect]
     Route: 042
  4. REMICADE [Suspect]
     Route: 042
  5. REMICADE [Suspect]
     Indication: RHEUMATOID ARTHRITIS
     Route: 042
  6. METHOTREXATE [Suspect]
  7. METHOTREXATE [Suspect]
     Indication: RHEUMATOID ARTHRITIS
  8. CODEINE PHOSPHATE [Concomitant]
  9. LOXOPROFEN SODIUM [Concomitant]
     Indication: RHEUMATOID ARTHRITIS
  10. PREDNISOLONE [Concomitant]
  11. PREDNISOLONE [Concomitant]
  12. PREDNISOLONE [Concomitant]
  13. PREDNISOLONE [Concomitant]
     Indication: RHEUMATOID ARTHRITIS
  14. AZULFIDINE EN-TABS [Concomitant]
     Indication: RHEUMATOID ARTHRITIS
  15. CYTOTEC [Concomitant]
     Indication: RHEUMATOID ARTHRITIS
  16. FERROMIA [Concomitant]
     Indication: RHEUMATOID ARTHRITIS
  17. BONALON [Concomitant]
     Indication: RHEUMATOID ARTHRITIS
  18. ASPARA-CA [Concomitant]
     Indication: RHEUMATOID ARTHRITIS
  19. VOLTAREN [Concomitant]
  20. FLOMOX [Concomitant]
  21. ATARAX [Concomitant]
  22. ARASENA A [Concomitant]
  23. PRIMPERAN INJ [Concomitant]
  24. NAUZELIN [Concomitant]
  25. MAGNESIUM OXIDE [Concomitant]
  26. TELEMINSOFT [Concomitant]

REACTIONS (5)
  - HEADACHE [None]
  - HERPES ZOSTER [None]
  - INFUSION RELATED REACTION [None]
  - JOINT SWELLING [None]
  - URTICARIA [None]
